FAERS Safety Report 23035969 (Version 1)
Quarter: 2023Q4

REPORT INFORMATION
  Report Type: Spontaneous
  Country: US (occurrence: US)
  Receive Date: 20231006
  Receipt Date: 20231006
  Transmission Date: 20240110
  Serious: Yes (Hospitalization)
  Sender: FDA-Public Use
  Company Number: US-CHEPLA-2023012248

PATIENT
  Age: 66 Year
  Sex: Male

DRUGS (1)
  1. CAPECITABINE [Suspect]
     Active Substance: CAPECITABINE
     Indication: Anal squamous cell carcinoma
     Dosage: MORNING AND EVENING MONDAY- FRIDAY
     Route: 048
     Dates: start: 202307

REACTIONS (1)
  - Radiation injury [Unknown]

NARRATIVE: CASE EVENT DATE: 20230902
